FAERS Safety Report 4296679-8 (Version None)
Quarter: 2004Q1

REPORT INFORMATION
  Report Type: 
  Country: None (occurrence: None)
  Receive Date: 20040217
  Receipt Date: 20031111
  Transmission Date: 20041129
  Serious: Yes (Other)
  Sender: FDA-Public Use
  Company Number: WAES 0311USA01896

PATIENT
  Age: 34 Year
  Sex: Female

DRUGS (2)
  1. PEPCID [Suspect]
     Route: 048
     Dates: start: 20020701, end: 20020725
  2. TEPRENONE [Concomitant]
     Route: 048
     Dates: start: 20020701, end: 20020725

REACTIONS (3)
  - DEAFNESS [None]
  - HYPOACUSIS [None]
  - SENSATION OF BLOCK IN EAR [None]
